FAERS Safety Report 4377684-X (Version None)
Quarter: 2004Q2

REPORT INFORMATION
  Report Type: 
  Country: None (occurrence: None)
  Receive Date: 20040602
  Receipt Date: 20031205
  Transmission Date: 20050107
  Serious: Yes (Life-Threatening)
  Sender: FDA-Public Use
  Company Number: NSADSS2003019920

PATIENT
  Age: 39 Year
  Sex: Female
  Weight: 63.5036 kg

DRUGS (10)
  1. PROPULSID [Suspect]
     Indication: ABDOMINAL PAIN UPPER
  2. PROPULSID [Suspect]
     Indication: GASTROOESOPHAGEAL REFLUX DISEASE
  3. CLARITHROMYCIN [Concomitant]
  4. CEPHALEXIN [Concomitant]
  5. NORTRIPTYLINE HCL [Concomitant]
  6. CIPROFLOXACIN [Concomitant]
  7. ERYTHROMYCIN [Concomitant]
  8. NEFAZODONE HCL [Concomitant]
  9. ATENOLOL [Concomitant]
  10. FLUOXETINE [Concomitant]

REACTIONS (4)
  - ARRHYTHMIA [None]
  - CARDIAC DISORDER [None]
  - ELECTROCARDIOGRAM QT PROLONGED [None]
  - HEART RATE IRREGULAR [None]
